FAERS Safety Report 7798779-4 (Version None)
Quarter: 2011Q4

REPORT INFORMATION
  Report Type: 
  Country: None (occurrence: None)
  Receive Date: 20111006
  Receipt Date: 20110921
  Transmission Date: 20120403
  Serious: Yes (Hospitalization)
  Sender: FDA-Public Use
  Company Number: PHHO2011JP15610

PATIENT
  Sex: Female
  Weight: 82 kg

DRUGS (20)
  1. MYSER [Concomitant]
     Dosage: UNK
     Route: 062
     Dates: start: 20110822
  2. LEVOTHYROXINE SODIUM [Concomitant]
     Dosage: 25 UG, UNK
     Route: 048
     Dates: start: 20080904
  3. ALLEGRA [Concomitant]
     Dosage: 120 MG, UNK
     Route: 048
     Dates: start: 20110822
  4. PLACEBO [Suspect]
     Indication: CARDIOVASCULAR DISORDER
     Dosage: DOUBLE BLINDED
     Route: 048
     Dates: start: 20080723, end: 20080824
  5. BOUFUUTSUUSHOUSAN [Suspect]
     Dosage: 5 G, UNK
     Route: 048
     Dates: start: 20080328
  6. MIGLITOL [Suspect]
     Dosage: 225 MG, UNK
     Route: 048
     Dates: start: 20070406
  7. METFORMIN HCL [Concomitant]
     Indication: TYPE 2 DIABETES MELLITUS
     Dosage: 750 MG, UNK
     Route: 048
     Dates: start: 20030624
  8. LANTUS [Concomitant]
     Indication: TYPE 2 DIABETES MELLITUS
     Dosage: 6 IU, UNK
     Route: 058
     Dates: start: 20090715
  9. ALLOPURINOL [Concomitant]
     Dosage: 200 MG, UNK
     Route: 048
     Dates: start: 20050805
  10. ASTAT [Concomitant]
     Dosage: UNK
     Route: 061
     Dates: start: 20080723
  11. HIRUDOID [Concomitant]
     Dosage: UNK
     Route: 062
     Dates: start: 20110829
  12. PLACEBO [Suspect]
     Dosage: DOUBLE BLINDED
     Route: 048
     Dates: start: 20090831, end: 20091020
  13. PLACEBO [Suspect]
     Dosage: DOUBLE BLINDED
     Route: 048
     Dates: start: 20091021
  14. NORVASC [Suspect]
     Dosage: 10 MG, UNK
     Route: 048
     Dates: start: 20090415
  15. SANCOBA [Concomitant]
     Dosage: UNK
     Dates: start: 20040227
  16. MICARDIS [Suspect]
     Dosage: 80 MG, UNK
     Route: 048
     Dates: start: 20080328
  17. PLACEBO [Suspect]
     Dosage: DOUBLE BLINDED
     Route: 048
     Dates: start: 20080825, end: 20090821
  18. METFORMIN HCL [Suspect]
     Dosage: 750 MG, UNK
     Route: 048
     Dates: start: 20110713
  19. DOXAZOSIN MESYLATE [Suspect]
     Dosage: 2 MG, UNK
     Route: 048
     Dates: start: 20060719
  20. HYALEIN [Concomitant]
     Dosage: UNK
     Dates: start: 20110415

REACTIONS (2)
  - GASTRIC ULCER [None]
  - COLONIC POLYP [None]
